FAERS Safety Report 6679072-X (Version None)
Quarter: 2010Q2

REPORT INFORMATION
  Report Type: 
  Country: None (occurrence: None)
  Receive Date: 20100409
  Receipt Date: 20100401
  Transmission Date: 20101027
  Serious: Yes (Other)
  Sender: FDA-Public Use
  Company Number: 20108327

PATIENT
  Sex: Female

DRUGS (1)
  1. LIORESAL [Suspect]
     Indication: MUSCLE SPASTICITY
     Dosage: 30-35 MCG, DAILY, INTRATHECAL
     Route: 037

REACTIONS (8)
  - ASTHENIA [None]
  - BLADDER SPHINCTER ATONY [None]
  - DRUG EFFECT INCREASED [None]
  - HYPOTONIA [None]
  - MULTIPLE SCLEROSIS [None]
  - PARESIS [None]
  - URINARY INCONTINENCE [None]
  - URINARY RETENTION [None]
